FAERS Safety Report 7811536-5 (Version None)
Quarter: 2011Q4

REPORT INFORMATION
  Report Type: 
  Country: None (occurrence: None)
  Receive Date: 20111013
  Receipt Date: 20111004
  Transmission Date: 20120403
  Serious: Yes (Other)
  Sender: FDA-Public Use
  Company Number: FR-JNJFOC-20110909595

PATIENT
  Sex: Male
  Weight: 78 kg

DRUGS (2)
  1. ABIRATERONE ACETATE [Suspect]
     Indication: PROSTATE CANCER
     Route: 048
     Dates: start: 20110606, end: 20110922
  2. ABIRATERONE ACETATE [Suspect]
     Route: 048

REACTIONS (3)
  - PROSTATIC SPECIFIC ANTIGEN INCREASED [None]
  - EJECTION FRACTION DECREASED [None]
  - DYSPNOEA EXERTIONAL [None]
